FAERS Safety Report 4430885-4 (Version None)
Quarter: 2004Q3

REPORT INFORMATION
  Report Type: 
  Country: None (occurrence: None)
  Receive Date: 20040823
  Receipt Date: 20030612
  Transmission Date: 20050211
  Serious: Yes (Hospitalization)
  Sender: FDA-Public Use
  Company Number: ES-ROCHE-340011

PATIENT
  Age: 44 Year
  Sex: Male
  Weight: 71.5 kg

DRUGS (8)
  1. DACLIZUMAB [Suspect]
     Route: 042
     Dates: start: 20030402, end: 20030428
  2. MYCOPHENOLATE MOFETIL [Suspect]
     Route: 048
     Dates: start: 20030404
  3. CYCLOSPORINE [Suspect]
     Route: 048
     Dates: start: 20030515
  4. PREDNISONE [Suspect]
     Route: 048
     Dates: start: 20030515
  5. PREDNISONE [Suspect]
     Route: 048
     Dates: start: 20031003
  6. OMEPRAZOLE [Concomitant]
     Route: 048
     Dates: start: 20030425, end: 20030519
  7. SIMVASTATINA [Concomitant]
     Route: 048
     Dates: start: 20040408
  8. AMLODIPINO [Concomitant]
     Route: 048
     Dates: start: 20040227

REACTIONS (2)
  - CYTOMEGALOVIRUS INFECTION [None]
  - RENAL IMPAIRMENT [None]
